FAERS Safety Report 11293044 (Version 1)
Quarter: 2015Q3

REPORT INFORMATION
  Report Type: Spontaneous
  Country: US (occurrence: US)
  Receive Date: 20150722
  Receipt Date: 20150722
  Transmission Date: 20151125
  Serious: No
  Sender: FDA-Public Use
  Company Number: US-ASTRAZENECA-2015SE67610

PATIENT
  Sex: Female
  Weight: 47.9 kg

DRUGS (6)
  1. AZELASTINE [Concomitant]
     Active Substance: AZELASTINE
     Indication: MULTIPLE ALLERGIES
     Route: 045
     Dates: start: 2005
  2. TUDORZA PRESSAIR [Suspect]
     Active Substance: ACLIDINIUM BROMIDE
     Indication: CHRONIC OBSTRUCTIVE PULMONARY DISEASE
     Route: 055
     Dates: start: 2015
  3. NEXIUM [Suspect]
     Active Substance: ESOMEPRAZOLE MAGNESIUM
     Indication: THROAT IRRITATION
     Route: 048
  4. ADVAIR HFA [Concomitant]
     Active Substance: FLUTICASONE PROPIONATE\SALMETEROL XINAFOATE
  5. NEXIUM [Suspect]
     Active Substance: ESOMEPRAZOLE MAGNESIUM
     Indication: THROAT IRRITATION
     Route: 048
  6. COMBIVENT [Concomitant]
     Active Substance: ALBUTEROL SULFATE\IPRATROPIUM BROMIDE

REACTIONS (13)
  - Eye pruritus [Unknown]
  - Tremor [Unknown]
  - Body height decreased [Unknown]
  - Fatigue [Unknown]
  - Product use issue [Unknown]
  - Visual acuity reduced [Unknown]
  - Fibromyalgia [Unknown]
  - Hypersensitivity [Unknown]
  - Muscle spasms [Unknown]
  - Off label use [Unknown]
  - Drug ineffective [Recovered/Resolved]
  - Candida infection [Unknown]
  - Hypoaesthesia [Unknown]
